FAERS Safety Report 17072936 (Version 3)
Quarter: 2020Q2

REPORT INFORMATION
  Report Type: Spontaneous
  Country: US (occurrence: US)
  Receive Date: 20191125
  Receipt Date: 20200629
  Transmission Date: 20200713
  Serious: Yes (Hospitalization)
  Sender: FDA-Public Use
  Company Number: US-JNJFOC-20191131189

PATIENT
  Age: 53 Year
  Sex: Male

DRUGS (2)
  1. INVOKANA [Suspect]
     Active Substance: CANAGLIFLOZIN
     Indication: TYPE 2 DIABETES MELLITUS
     Route: 048
     Dates: start: 20160113, end: 201611
  2. INVOKANA [Suspect]
     Active Substance: CANAGLIFLOZIN
     Route: 048

REACTIONS (6)
  - Necrosis [Recovering/Resolving]
  - Rash [Recovered/Resolved]
  - Osteomyelitis acute [Recovering/Resolving]
  - Gangrene [Recovering/Resolving]
  - Diabetic foot infection [Recovering/Resolving]
  - Toe amputation [Unknown]

NARRATIVE: CASE EVENT DATE: 201611
